FAERS Safety Report 5952023-9 (Version None)
Quarter: 2008Q4

REPORT INFORMATION
  Report Type: 
  Country: None (occurrence: None)
  Receive Date: 20081113
  Receipt Date: 20080124
  Transmission Date: 20090506
  Serious: No
  Sender: FDA-Public Use
  Company Number: A0697302A

PATIENT
  Age: 61 Year
  Sex: Male

DRUGS (6)
  1. COREG [Suspect]
     Indication: LEFT VENTRICULAR DYSFUNCTION
     Dosage: 25MG TWICE PER DAY
     Route: 048
     Dates: start: 20061001
  2. LISINOPRIL [Concomitant]
  3. ASPIRIN [Concomitant]
  4. INSPRA [Concomitant]
  5. LIPITOR [Concomitant]
  6. COUMADIN [Concomitant]

REACTIONS (3)
  - SINUSITIS [None]
  - SLEEP DISORDER [None]
  - SOMNOLENCE [None]
